FAERS Safety Report 9606166 (Version 1)
Quarter: 2013Q4

REPORT INFORMATION
  Report Type: Spontaneous
  Country: US (occurrence: US)
  Receive Date: 20131008
  Receipt Date: 20131008
  Transmission Date: 20140711
  Serious: No
  Sender: FDA-Public Use
  Company Number: US-AMGEN-USASP2013045449

PATIENT
  Age: 83 Year
  Sex: Female

DRUGS (4)
  1. PROLIA [Suspect]
     Indication: OSTEOPOROSIS POSTMENOPAUSAL
     Dosage: UNK
  2. THYROID [Concomitant]
  3. ANTIHYPERTENSIVES [Concomitant]
  4. CALCIUM WITH VITAMIN D             /00944201/ [Concomitant]

REACTIONS (3)
  - Vitamin D decreased [Unknown]
  - Limb discomfort [Unknown]
  - Eczema [Unknown]
